FAERS Safety Report 11992652 (Version 1)
Quarter: 2016Q1

REPORT INFORMATION
  Report Type: Spontaneous
  Country: US (occurrence: US)
  Receive Date: 20160203
  Receipt Date: 20160203
  Transmission Date: 20160526
  Serious: No
  Sender: FDA-Public Use
  Company Number: US-UCBSA-2015011726

PATIENT
  Age: 51 Year
  Sex: Female

DRUGS (1)
  1. KEPPRA [Suspect]
     Active Substance: LEVETIRACETAM
     Indication: SEIZURE
     Dosage: 500 MG 4/DAY
     Dates: start: 2012

REACTIONS (7)
  - Fall [Unknown]
  - Psychomotor seizures [Recovered/Resolved]
  - Drug prescribing error [Unknown]
  - Stress [Unknown]
  - Limb injury [Recovered/Resolved]
  - Eye contusion [Unknown]
  - Contusion [Unknown]

NARRATIVE: CASE EVENT DATE: 2012
